FAERS Safety Report 7441541-2 (Version None)
Quarter: 2011Q2

REPORT INFORMATION
  Report Type: 
  Country: None (occurrence: None)
  Receive Date: 20110428
  Receipt Date: 20110427
  Transmission Date: 20111010
  Serious: Yes (Death)
  Sender: FDA-Public Use
  Company Number: AU-B.I. PHARMACEUTICALS,INC./RIDGEFIELD-2011-AU-00226AU

PATIENT
  Sex: Female

DRUGS (2)
  1. SPIRIVA [Suspect]
  2. ATROVENT [Suspect]

REACTIONS (2)
  - DRUG INEFFECTIVE [None]
  - DEATH [None]
